FAERS Safety Report 4830619-5 (Version None)
Quarter: 2005Q4

REPORT INFORMATION
  Report Type: 
  Country: None (occurrence: None)
  Receive Date: 20051114
  Receipt Date: 20051102
  Transmission Date: 20060501
  Serious: Yes (Hospitalization, Other)
  Sender: FDA-Public Use
  Company Number: 2005151331

PATIENT
  Age: 50 Year
  Sex: Male

DRUGS (8)
  1. SULFASALAZINE [Suspect]
     Indication: ILL-DEFINED DISORDER
  2. ATENOLOL [Suspect]
     Indication: ILL-DEFINED DISORDER
  3. ADALIMUMAB (ADALIMUMAB) [Suspect]
     Indication: RHEUMATOID ARTHRITIS
     Dosage: (40 MG, 1 IN 2 WK), SUBCUTANEOUS
     Route: 058
     Dates: start: 20050401, end: 20050803
  4. LANSOPRAZOLE [Suspect]
     Indication: ILL-DEFINED DISORDER
  5. PROCHLORPERAZINE MALEATE [Suspect]
     Indication: ILL-DEFINED DISORDER
  6. ROFECOXIB [Suspect]
     Indication: ILL-DEFINED DISORDER
  7. WARFARIN SODIUM [Suspect]
     Indication: ILL-DEFINED DISORDER
  8. FERROUS SULPHATE (FERROUS SULFATE) [Suspect]
     Indication: ILL-DEFINED DISORDER

REACTIONS (2)
  - ARTHRITIS INFECTIVE [None]
  - DRUG INEFFECTIVE [None]
